FAERS Safety Report 14079835 (Version 1)
Quarter: 2017Q4

REPORT INFORMATION
  Report Type: Spontaneous
  Country: US (occurrence: US)
  Receive Date: 20171012
  Receipt Date: 20171012
  Transmission Date: 20180321
  Serious: No
  Sender: FDA-Public Use
  Company Number: US-AMNEAL PHARMACEUTICALS-2017AMN00771

PATIENT
  Age: 77 Year
  Sex: Male
  Weight: 68.21 kg

DRUGS (1)
  1. DICLOFENAC SODIUM. [Suspect]
     Active Substance: DICLOFENAC SODIUM
     Indication: OSTEOARTHRITIS
     Dosage: (VERY LITTLE,LESS THAN A SIZE OF DIME)1X/DAY
     Dates: start: 20170721, end: 20170730

REACTIONS (4)
  - Faeces discoloured [Unknown]
  - Hypersensitivity [Unknown]
  - Nausea [Recovered/Resolved]
  - Diarrhoea [Recovered/Resolved]

NARRATIVE: CASE EVENT DATE: 201707
